FAERS Safety Report 8619385-5 (Version None)
Quarter: 2012Q3

REPORT INFORMATION
  Report Type: 
  Country: None (occurrence: None)
  Receive Date: 20120824
  Receipt Date: 20120814
  Transmission Date: 20120928
  Serious: Yes (Death, Hospitalization, Other)
  Sender: FDA-Public Use
  Company Number: AR-BRISTOL-MYERS SQUIBB COMPANY-16511388

PATIENT
  Age: 58 Year
  Sex: Male

DRUGS (2)
  1. YERVOY [Suspect]
     Indication: METASTATIC MALIGNANT MELANOMA
     Dosage: NO OF INF:2  INFUSION ON 9FEB12
     Dates: start: 20120209
  2. CARBOPLATIN [Suspect]
     Dates: start: 20120101

REACTIONS (3)
  - HEPATOTOXICITY [None]
  - NEOPLASM MALIGNANT [None]
  - SEPSIS [None]
